FAERS Safety Report 5490734-2 (Version None)
Quarter: 2007Q4

REPORT INFORMATION
  Report Type: 
  Country: None (occurrence: None)
  Receive Date: 20071019
  Receipt Date: 20071016
  Transmission Date: 20080405
  Serious: Yes (Other)
  Sender: FDA-Public Use
  Company Number: B0491140A

PATIENT
  Sex: Female

DRUGS (1)
  1. PAXIL [Suspect]
     Indication: DEPRESSION
     Dosage: 40MG PER DAY
     Route: 048
     Dates: start: 20070401

REACTIONS (4)
  - ASTHENOPIA [None]
  - DRUG WITHDRAWAL SYNDROME [None]
  - EXCESSIVE EYE BLINKING [None]
  - MANIA [None]
